FAERS Safety Report 5155431-1 (Version None)
Quarter: 2006Q4

REPORT INFORMATION
  Report Type: 
  Country: None (occurrence: None)
  Receive Date: 20061121
  Receipt Date: 20061031
  Transmission Date: 20070319
  Serious: Yes (Disabling)
  Sender: FDA-Public Use
  Company Number: PHEH2006US13654

PATIENT
  Age: 59 Year
  Sex: Male

DRUGS (1)
  1. TRILEPTAL [Suspect]
     Indication: NEURALGIA
     Dosage: 150 MG, BID
     Dates: start: 20061026, end: 20061027

REACTIONS (2)
  - AGEUSIA [None]
  - DYSGEUSIA [None]
